APPROVED DRUG PRODUCT: SKYCLARYS
Active Ingredient: OMAVELOXOLONE
Strength: 50MG
Dosage Form/Route: CAPSULE;ORAL
Application: N216718 | Product #001
Applicant: BIOGEN US CORPORATION
Approved: Feb 28, 2023 | RLD: Yes | RS: Yes | Type: RX

PATENTS:
Patent 11091430 | Expires: Apr 20, 2029
Patent 11919838 | Expires: Apr 20, 2029
Patent 11919838 | Expires: Apr 20, 2029
Patent 9701709 | Expires: Apr 24, 2033
Patent 9670147 | Expires: Apr 20, 2029
Patent 8440854 | Expires: Apr 20, 2029
Patent 8993640 | Expires: Apr 24, 2033
Patent 8124799 | Expires: Dec 3, 2029

EXCLUSIVITY:
Code: M-270 | Date: Dec 20, 2027
Code: NCE | Date: Feb 28, 2028
Code: ODE-427 | Date: Feb 28, 2030